FAERS Safety Report 6977872-X (Version None)
Quarter: 2010Q3

REPORT INFORMATION
  Report Type: 
  Country: None (occurrence: None)
  Receive Date: 20100913
  Receipt Date: 20100907
  Transmission Date: 20110219
  Serious: Yes (Other)
  Sender: FDA-Public Use
  Company Number: US-BIOGENIDEC-2010BI030918

PATIENT
  Age: 54 Year
  Sex: Female
  Weight: 83 kg

DRUGS (3)
  1. AVONEX [Suspect]
     Indication: MULTIPLE SCLEROSIS
     Route: 030
     Dates: start: 20100101, end: 20100801
  2. AVONEX [Suspect]
     Route: 030
     Dates: start: 20100903, end: 20100903
  3. AVONEX [Suspect]
     Route: 030
     Dates: start: 20070101, end: 20100101

REACTIONS (4)
  - CONVULSION [None]
  - FEELING ABNORMAL [None]
  - PYREXIA [None]
  - URTICARIA [None]
